FAERS Safety Report 24582856 (Version 1)
Quarter: 2024Q4

REPORT INFORMATION
  Report Type: Report from Study
  Country: US (occurrence: US)
  Receive Date: 20241106
  Receipt Date: 20241106
  Transmission Date: 20250115
  Serious: Yes (Hospitalization)
  Sender: ABBVIE
  Company Number: US-ABBVIE-5987241

PATIENT
  Sex: Female

DRUGS (1)
  1. RINVOQ [Suspect]
     Active Substance: UPADACITINIB
     Indication: Product used for unknown indication
     Route: 048
     Dates: start: 20230301

REACTIONS (6)
  - Salmonellosis [Recovering/Resolving]
  - COVID-19 [Recovering/Resolving]
  - Fall [Unknown]
  - Loss of consciousness [Unknown]
  - Hospitalisation [Unknown]
  - Pneumonia [Recovering/Resolving]
